APPROVED DRUG PRODUCT: TRAVASOL 8.5% SULFITE FREE W/ ELECTROLYTES IN PLASTIC CONTAINER
Active Ingredient: AMINO ACIDS; MAGNESIUM CHLORIDE; POTASSIUM PHOSPHATE, DIBASIC; SODIUM ACETATE; SODIUM CHLORIDE
Strength: 8.5%;102MG/100ML;522MG/100ML;594MG/100ML;154MG/100ML
Dosage Form/Route: INJECTABLE;INJECTION
Application: N020173 | Product #002
Applicant: BAXTER HEALTHCARE CORP
Approved: Oct 27, 1995 | RLD: No | RS: No | Type: DISCN